FAERS Safety Report 12386780 (Version 15)
Quarter: 2018Q2

REPORT INFORMATION
  Report Type: Spontaneous
  Country: US (occurrence: US)
  Receive Date: 20160519
  Receipt Date: 20180417
  Transmission Date: 20180711
  Serious: Yes (Death, Hospitalization)
  Sender: FDA-Public Use
  Company Number: US-ACTELION-A-NJ2016-136373

PATIENT
  Age: 67 Year
  Sex: Female
  Weight: 95.24 kg

DRUGS (6)
  1. XARELTO [Concomitant]
     Active Substance: RIVAROXABAN
  2. ORENITRAM [Concomitant]
     Active Substance: TREPROSTINIL
     Dosage: 10 MG, TID
     Dates: start: 201601
  3. REMODULIN [Suspect]
     Active Substance: TREPROSTINIL
     Indication: PRODUCT USED FOR UNKNOWN INDICATION
     Dosage: 65 NG/KG, PER MIN
     Route: 065
     Dates: start: 201208, end: 20180225
  4. ADCIRCA [Concomitant]
     Active Substance: TADALAFIL
     Indication: PULMONARY ARTERIAL HYPERTENSION
     Dosage: 40 MG, QD
     Dates: start: 201103, end: 20180225
  5. SOTALOL. [Suspect]
     Active Substance: SOTALOL
     Indication: HEART RATE
     Route: 065
  6. TRACLEER [Suspect]
     Active Substance: BOSENTAN
     Indication: PULMONARY ARTERIAL HYPERTENSION
     Dosage: 125 MG, BID
     Route: 048
     Dates: start: 201103, end: 20180225

REACTIONS (19)
  - Condition aggravated [Fatal]
  - Diarrhoea [Unknown]
  - Pulmonary arterial hypertension [Fatal]
  - Dyspnoea [Recovered/Resolved]
  - Catheter management [Unknown]
  - Infusion site haemorrhage [Unknown]
  - Cardiac failure congestive [Recovered/Resolved]
  - Catheter site pain [Unknown]
  - Influenza like illness [Unknown]
  - Right ventricular failure [Fatal]
  - Cardiac ablation [Unknown]
  - Pleural effusion [Recovered/Resolved]
  - Pain in extremity [Unknown]
  - Atrial fibrillation [Recovering/Resolving]
  - Disease progression [Fatal]
  - Hypotension [Unknown]
  - Lethargy [Unknown]
  - Malaise [Unknown]
  - Nasopharyngitis [Unknown]

NARRATIVE: CASE EVENT DATE: 20160511
